FAERS Safety Report 10217843 (Version 2)
Quarter: 2014Q2

REPORT INFORMATION
  Report Type: Spontaneous
  Country: US (occurrence: US)
  Receive Date: 20140605
  Receipt Date: 20140609
  Transmission Date: 20141212
  Serious: Yes (Hospitalization)
  Sender: FDA-Public Use
  Company Number: US-GILEAD-2014-0104314

PATIENT
  Age: 70 Year
  Sex: Female

DRUGS (4)
  1. LETAIRIS [Suspect]
     Indication: PRODUCT USED FOR UNKNOWN INDICATION
     Dosage: 5 MG, QD
     Route: 065
     Dates: start: 20120917
  2. TYVASO [Concomitant]
  3. REVATIO [Concomitant]
  4. DIGOXIN [Concomitant]
     Dosage: 0.125 MG, QD
     Route: 048

REACTIONS (5)
  - Blood calcium decreased [Unknown]
  - Blood potassium decreased [Unknown]
  - Epistaxis [Unknown]
  - Epistaxis [Unknown]
  - Haemoglobin decreased [Unknown]
